FAERS Safety Report 8538956-8 (Version None)
Quarter: 2012Q3

REPORT INFORMATION
  Report Type: 
  Country: None (occurrence: None)
  Receive Date: 20120726
  Receipt Date: 20120719
  Transmission Date: 20120928
  Serious: Yes (Other)
  Sender: FDA-Public Use
  Company Number: PHEH2012US014461

PATIENT
  Sex: Male

DRUGS (6)
  1. NIASPAN [Concomitant]
  2. WELCHOL [Concomitant]
  3. LOPRESSOR [Concomitant]
     Dosage: 50 MG, UNK
  4. METOPROLOL SUCCINATE [Suspect]
     Dosage: UNK UKN, UNK
  5. ALTACE [Concomitant]
  6. ASPIRIN [Concomitant]

REACTIONS (1)
  - MYOCARDIAL INFARCTION [None]
